FAERS Safety Report 6170714-4 (Version None)
Quarter: 2009Q2

REPORT INFORMATION
  Report Type: 
  Country: None (occurrence: None)
  Receive Date: 20090428
  Receipt Date: 20090417
  Transmission Date: 20091009
  Serious: Yes (Hospitalization, Other)
  Sender: FDA-Public Use
  Company Number: US-BAXTER-2009BH006144

PATIENT
  Sex: Male

DRUGS (1)
  1. DIANEAL [Suspect]
     Indication: PERITONEAL DIALYSIS
     Route: 033
     Dates: start: 20080409

REACTIONS (5)
  - ANOREXIA [None]
  - DEHYDRATION [None]
  - DEPRESSION [None]
  - FAILURE TO THRIVE [None]
  - SYNCOPE [None]
